FAERS Safety Report 4908134-X (Version None)
Quarter: 2006Q1

REPORT INFORMATION
  Report Type: 
  Country: None (occurrence: None)
  Receive Date: 20060210
  Receipt Date: 20060202
  Transmission Date: 20060701
  Serious: Yes (Hospitalization)
  Sender: FDA-Public Use
  Company Number: 2006SE00719

PATIENT
  Age: 22304 Day
  Sex: Male

DRUGS (8)
  1. CASODEX [Suspect]
     Dates: start: 20050701, end: 20050816
  2. ALLOPURINOL [Suspect]
     Dates: start: 20050701, end: 20050817
  3. CODEINE + PARACETAMOL [Suspect]
     Dates: start: 20050701, end: 20050817
  4. LEUPRORELIN ACETATE (ENANTONE) [Concomitant]
  5. PAMIDRONATE DISODIUM [Concomitant]
  6. ENALAPRIL [Concomitant]
  7. FUROSEMIDE [Concomitant]
  8. NADROPARIN [Concomitant]

REACTIONS (1)
  - TOXIC EPIDERMAL NECROLYSIS [None]
